FAERS Safety Report 8056604-0 (Version None)
Quarter: 2012Q1

REPORT INFORMATION
  Report Type: 
  Country: None (occurrence: None)
  Receive Date: 20120119
  Receipt Date: 20120110
  Transmission Date: 20120608
  Serious: Yes (Hospitalization)
  Sender: FDA-Public Use
  Company Number: CHPA2012US001078

PATIENT
  Sex: Female

DRUGS (3)
  1. EXCEDRIN ES BACK + BODY [Suspect]
     Indication: PAIN
     Dosage: UNK, UNK
     Route: 048
     Dates: end: 20120106
  2. EXCEDRIN (MIGRAINE) [Suspect]
     Indication: MIGRAINE
     Dosage: UNK DF, BID
     Route: 048
     Dates: start: 20120106, end: 20120106
  3. EXCEDRIN (MIGRAINE) [Suspect]
     Dosage: UNK, UNK
     Route: 048

REACTIONS (5)
  - HEART RATE IRREGULAR [None]
  - BLOOD PRESSURE INCREASED [None]
  - DRUG ADMINISTRATION ERROR [None]
  - ATRIAL FIBRILLATION [None]
  - HEART RATE INCREASED [None]
